APPROVED DRUG PRODUCT: BROMSITE
Active Ingredient: BROMFENAC SODIUM
Strength: EQ 0.075% ACID
Dosage Form/Route: SOLUTION/DROPS;OPHTHALMIC
Application: N206911 | Product #001 | TE Code: AB
Applicant: SUN PHARMACEUTICAL INDUSTRIES LTD
Approved: Apr 8, 2016 | RLD: Yes | RS: Yes | Type: RX

PATENTS:
Patent RE50218 | Expires: Mar 5, 2029